FAERS Safety Report 10052418 (Version 2)
Quarter: 2014Q2

REPORT INFORMATION
  Report Type: Spontaneous
  Country: US (occurrence: US)
  Receive Date: 20140402
  Receipt Date: 20140402
  Transmission Date: 20141212
  Serious: Yes (Hospitalization, Other)
  Sender: FDA-Public Use
  Company Number: US-JNJFOC-20140206935

PATIENT
  Age: 80 Year
  Sex: Female
  Weight: 97.98 kg

DRUGS (18)
  1. XARELTO [Suspect]
     Indication: CEREBROVASCULAR ACCIDENT PROPHYLAXIS
     Route: 048
     Dates: start: 20140120
  2. XARELTO [Suspect]
     Indication: CEREBROVASCULAR ACCIDENT PROPHYLAXIS
     Route: 048
     Dates: end: 20140120
  3. XARELTO [Suspect]
     Indication: ATRIAL FIBRILLATION
     Route: 048
     Dates: end: 20140120
  4. XARELTO [Suspect]
     Indication: ATRIAL FIBRILLATION
     Route: 048
     Dates: start: 20140120
  5. XARELTO [Suspect]
     Indication: THROMBOSIS PROPHYLAXIS
     Route: 048
     Dates: end: 20140120
  6. XARELTO [Suspect]
     Indication: THROMBOSIS PROPHYLAXIS
     Route: 048
     Dates: start: 20140120
  7. XARELTO [Suspect]
     Indication: HIP SURGERY
     Route: 048
     Dates: start: 20140120
  8. XARELTO [Suspect]
     Indication: HIP SURGERY
     Route: 048
     Dates: end: 20140120
  9. ASPIRIN [Suspect]
     Indication: PRODUCT USED FOR UNKNOWN INDICATION
     Route: 048
  10. MOBIC [Suspect]
     Indication: PRODUCT USED FOR UNKNOWN INDICATION
     Route: 065
  11. CELEXA [Concomitant]
     Route: 065
  12. TYLENOL [Concomitant]
     Route: 065
  13. BENADRYL [Concomitant]
     Route: 048
  14. LORTAB [Concomitant]
     Route: 048
  15. LISINOPRIL [Concomitant]
     Route: 048
  16. MELOXICAM [Concomitant]
     Route: 048
  17. MULTIVITAMINS [Concomitant]
     Route: 048
  18. BYSTOLIC [Concomitant]
     Route: 048

REACTIONS (2)
  - Gastrointestinal haemorrhage [Recovered/Resolved]
  - Petechiae [Unknown]
